FAERS Safety Report 13355411 (Version 1)
Quarter: 2017Q1

REPORT INFORMATION
  Report Type: Spontaneous
  Country: DE (occurrence: DE)
  Receive Date: 20170321
  Receipt Date: 20170321
  Transmission Date: 20170429
  Serious: Yes (Congenital Anomaly, Other)
  Sender: FDA-Public Use
  Company Number: DE-MYLANLABS-2017M1016813

PATIENT

DRUGS (6)
  1. PARACETAMOL [Concomitant]
     Active Substance: ACETAMINOPHEN
     Indication: PRODUCT USED FOR UNKNOWN INDICATION
     Dosage: GESTATION PERIOD AT TIME OF EXPOSURE: 1 TRIMESTER;
     Route: 064
  2. FONDAPARINUX [Suspect]
     Active Substance: FONDAPARINUX
     Indication: PROPHYLAXIS
     Dosage: 2.5MG - GESTATION PERIOD AT TIME OF EXPOSURE: 2 TR
     Route: 064
  3. MONO-EMBOLEX [Concomitant]
     Active Substance: CERTOPARIN SODIUM
     Indication: PRODUCT USED FOR UNKNOWN INDICATION
     Dosage: GESTATION PERIOD AT TIME OF EXPOSURE: 3 TRIMESTER;
     Route: 064
  4. ACETYLSALICYLIC ACID [Concomitant]
     Active Substance: ASPIRIN
     Indication: PRODUCT USED FOR UNKNOWN INDICATION
     Dosage: 50 MG - GESTATION PERIOD AT TIME OF EXPOSURE: 2 TR
     Route: 064
  5. FOLIO                              /00349401/ [Concomitant]
     Active Substance: CYANOCOBALAMIN\FOLIC ACID
     Indication: PRODUCT USED FOR UNKNOWN INDICATION
     Dosage: 0.4 MG - GESTATION PERIOD AT TIME OF EXPOSURE: 1 T
     Route: 064
     Dates: start: 20150920, end: 20160619
  6. OXYTOCIN. [Concomitant]
     Active Substance: OXYTOCIN
     Indication: PRODUCT USED FOR UNKNOWN INDICATION
     Dosage: GESTATION PERIOD AT TIME OF EXPOSURE: 3 TRIMESTER;
     Route: 064
     Dates: start: 20160619, end: 20160619

REACTIONS (2)
  - Cataract congenital [Not Recovered/Not Resolved]
  - Foetal exposure during pregnancy [Unknown]
